FAERS Safety Report 9525257 (Version 3)
Quarter: 2013Q4

REPORT INFORMATION
  Report Type: Spontaneous
  Country: JP (occurrence: JP)
  Receive Date: 20130916
  Receipt Date: 20131029
  Transmission Date: 20140711
  Serious: Yes (Other)
  Sender: FDA-Public Use
  Company Number: JP-TEVA-430974ISR

PATIENT
  Age: 41 Year
  Sex: Male

DRUGS (6)
  1. CISPLATIN [Suspect]
     Indication: GERM CELL CANCER
     Dosage: THREE CYCLES [DOSAGE NOT STATED]
     Route: 065
  2. ETOPOSIDE [Suspect]
     Indication: GERM CELL CANCER
     Dosage: ONE CYCLE [DOSAGE NOT STATED]
     Route: 065
  3. IRINOTECAN [Suspect]
     Indication: GERM CELL CANCER
     Dosage: TWO CYCLES [DOSAGE NOT STATED]
     Route: 065
  4. PACLITAXEL [Suspect]
     Indication: GERM CELL CANCER
     Dosage: TWO CYCLES [DOSAGE NOT STATED]
     Route: 065
  5. IFOSFAMIDE [Suspect]
     Indication: GERM CELL CANCER
     Dosage: TWO CYCLES [DOSAGE NOT STATED]
     Route: 065
  6. NEDAPLATIN [Suspect]
     Indication: GERM CELL CANCER
     Dosage: TWO CYCLES [DOSAGE NOT STATED]
     Route: 065

REACTIONS (1)
  - Neuropathy peripheral [Unknown]
